FAERS Safety Report 8785812 (Version 1)
Quarter: 2012Q4

REPORT INFORMATION
  Report Type: 
  Country: CH (occurrence: CH)
  Receive Date: 20120914
  Receipt Date: 20120914
  Transmission Date: 20130627
  Serious: Yes (Hospitalization)
  Sender: FDA-Public Use
  Company Number: CH-GLAXOSMITHKLINE-B0830404A

PATIENT
  Age: 77 Year
  Sex: Male
  Weight: 86 kg

DRUGS (8)
  1. REVOLADE [Suspect]
     Indication: THROMBOCYTOPENIA
     Dosage: 50MG Per day
     Route: 048
     Dates: start: 20120705, end: 20120810
  2. AMOXICILLIN [Suspect]
     Indication: EXTRADURAL ABSCESS
     Dosage: 2G Twice per day
     Route: 042
     Dates: start: 20120804, end: 20120808
  3. AMOXICILLIN + CLAVULANIC ACID [Suspect]
     Indication: EXTRADURAL ABSCESS
     Dosage: 1.2G Three times per day
     Route: 042
     Dates: start: 20120608, end: 20120803
  4. IMIPENEM [Concomitant]
     Indication: EXTRADURAL ABSCESS
     Route: 042
     Dates: start: 20120706, end: 20120707
  5. PREDNISOLONE [Concomitant]
     Indication: CUTANEOUS LUPUS ERYTHEMATOSUS
     Dosage: 5MG Per day
     Route: 048
  6. AMLODIPINE [Concomitant]
     Indication: ESSENTIAL HYPERTENSION
     Dosage: 10MG Single dose
     Route: 048
     Dates: start: 20120731
  7. OMEPRAZOLE [Concomitant]
     Indication: GASTROOESOPHAGEAL REFLUX DISEASE
     Dosage: 20MG Per day
     Route: 048
     Dates: start: 2010
  8. DILATREND [Concomitant]
     Dosage: 25MG Twice per day
     Dates: start: 2010

REACTIONS (1)
  - Renal failure acute [Not Recovered/Not Resolved]
